FAERS Safety Report 7439116-4 (Version None)
Quarter: 2011Q2

REPORT INFORMATION
  Report Type: 
  Country: None (occurrence: None)
  Receive Date: 20110427
  Receipt Date: 20110421
  Transmission Date: 20111010
  Serious: Yes (Other)
  Sender: FDA-Public Use
  Company Number: US-RB-022551-11

PATIENT
  Age: 55 Year
  Sex: Female

DRUGS (1)
  1. MUCINEX DM [Suspect]
     Dosage: DOSING STARTED ON 22-FEB-2011, 5 TABLETS TAKEN IN TOTAL
     Route: 048

REACTIONS (5)
  - MEDICATION RESIDUE [None]
  - HAEMATOCHEZIA [None]
  - ANAL PRURITUS [None]
  - VOMITING [None]
  - ABDOMINAL PAIN UPPER [None]
